FAERS Safety Report 9645362 (Version 1)
Quarter: 2013Q4

REPORT INFORMATION
  Report Type: Spontaneous
  Country: US (occurrence: US)
  Receive Date: 20131025
  Receipt Date: 20131025
  Transmission Date: 20140711
  Serious: Yes (Hospitalization, Other)
  Sender: FDA-Public Use
  Company Number: US-ELI_LILLY_AND_COMPANY-US201310005681

PATIENT
  Age: 53 Year
  Sex: Female

DRUGS (4)
  1. HUMULIN NPH [Suspect]
     Indication: TYPE 2 DIABETES MELLITUS
     Dosage: 58 U, BID
     Route: 065
     Dates: start: 1974
  2. HUMULIN NPH [Suspect]
     Route: 065
  3. HUMULIN NPH [Suspect]
     Route: 065
  4. HUMULIN NPH [Suspect]
     Dosage: UNK
     Route: 065

REACTIONS (3)
  - Myocardial infarction [Unknown]
  - Hypertension [Not Recovered/Not Resolved]
  - Dyspnoea [Not Recovered/Not Resolved]
